FAERS Safety Report 16703082 (Version 6)
Quarter: 2019Q3

REPORT INFORMATION
  Report Type: Spontaneous
  Country: US (occurrence: US)
  Receive Date: 20190814
  Receipt Date: 20190919
  Transmission Date: 20191004
  Serious: Yes (Hospitalization, Other)
  Sender: FDA-Public Use
  Company Number: US-PFIZER INC-2019345323

PATIENT
  Age: 63 Year
  Sex: Male
  Weight: 98 kg

DRUGS (8)
  1. LOSARTAN AND HYDROCHLOROTHIAZIDE [Concomitant]
     Active Substance: HYDROCHLOROTHIAZIDE\LOSARTAN POTASSIUM
     Dosage: 1 DF, DAILY [1 TAB ORAL DAILY 30 DAYS #30 TAB, 50-12.5 MG TABLET]
     Route: 048
  2. AMLODIPINE [Concomitant]
     Active Substance: AMLODIPINE BESYLATE
     Dosage: 10 MG, DAILY
     Route: 048
  3. AMOXICILLIN + CLAV. POTASSIUM [Concomitant]
     Active Substance: AMOXICILLIN\CLAVULANATE POTASSIUM
     Dosage: UNK, 2X/DAY [875-125 MG TABLET]
     Route: 048
  4. NOVOLOG [Concomitant]
     Active Substance: INSULIN ASPART
     Dosage: 50 IU, 2X/DAY [70-30 U-100 INSULIN]
     Route: 058
  5. CARBIDOPA-LEVODOPA-B [Concomitant]
     Active Substance: CARBIDOPA\LEVODOPA
     Dosage: 100 MG, 3X/DAY
     Route: 048
  6. LYRICA [Suspect]
     Active Substance: PREGABALIN
     Indication: DIABETIC NEUROPATHY
     Dosage: 75 MG, 2X/DAY
     Route: 048
     Dates: end: 20190728
  7. DEXTROMETHORPHAN-GUAIFENESIN [Concomitant]
     Active Substance: DEXTROMETHORPHAN\GUAIFENESIN
     Dosage: 1 DF, AS NEEDED [1 TAB ORAL TWICE DAILY AS NEEDED/30-600 MG TABLET]
     Route: 048
  8. LEVALBUTEROL HCL [Concomitant]
     Active Substance: LEVALBUTEROL HYDROCHLORIDE
     Indication: RESPIRATORY DISORDER
     Dosage: 0.63 MG, 4X/DAY [EVERY 6 HOURS #20 ML/0.63 MG/3 ML ]

REACTIONS (7)
  - Parkinson^s disease [Not Recovered/Not Resolved]
  - Circumstance or information capable of leading to medication error [Unknown]
  - Gait disturbance [Not Recovered/Not Resolved]
  - Nervousness [Not Recovered/Not Resolved]
  - Product expiration date issue [Unknown]
  - Feeling jittery [Not Recovered/Not Resolved]
  - Aphasia [Unknown]
